FAERS Safety Report 4321745-8 (Version None)
Quarter: 2004Q1

REPORT INFORMATION
  Report Type: 
  Country: None (occurrence: None)
  Receive Date: 20040322
  Receipt Date: 20031112
  Transmission Date: 20041129
  Serious: No
  Sender: FDA-Public Use
  Company Number: US-BRISTOL-MYERS SQUIBB COMPANY-12448437

PATIENT
  Age: 33 Year
  Sex: Female

DRUGS (4)
  1. MONISTAT [Suspect]
     Indication: VAGINAL MYCOSIS
     Route: 067
     Dates: start: 20031018, end: 20031018
  2. MONISTAT 3 [Suspect]
     Indication: VAGINAL MYCOSIS
     Route: 067
  3. KEFLEX [Concomitant]
  4. GUAIFENESIN [Concomitant]

REACTIONS (2)
  - VAGINAL ERYTHEMA [None]
  - VULVAL OEDEMA [None]
